FAERS Safety Report 15611714 (Version 6)
Quarter: 2019Q1

REPORT INFORMATION
  Report Type: Spontaneous
  Country: US (occurrence: US)
  Receive Date: 20181113
  Receipt Date: 20190327
  Transmission Date: 20190417
  Serious: No
  Sender: FDA-Public Use
  Company Number: US-BRISTOL-MYERS SQUIBB COMPANY-BMS-2018-106407

PATIENT
  Sex: Female
  Weight: 90.7 kg

DRUGS (1)
  1. ORENCIA [Suspect]
     Active Substance: ABATACEPT
     Indication: RHEUMATOID ARTHRITIS
     Dosage: 125 MG, QWK
     Route: 058
     Dates: start: 201810

REACTIONS (9)
  - Malaise [Unknown]
  - Pain [Unknown]
  - Condition aggravated [Unknown]
  - Nausea [Unknown]
  - Influenza like illness [Unknown]
  - Sinusitis [Unknown]
  - Heart rate increased [Unknown]
  - Pain in extremity [Unknown]
  - Nasopharyngitis [Unknown]
